FAERS Safety Report 9412983 (Version 1)
Quarter: 2013Q3

REPORT INFORMATION
  Report Type: Spontaneous
  Country: DE (occurrence: DE)
  Receive Date: 20130722
  Receipt Date: 20130722
  Transmission Date: 20140515
  Serious: Yes (Hospitalization, Other)
  Sender: FDA-Public Use
  Company Number: DE-UCBSA-091672

PATIENT
  Age: 25 Year
  Sex: Female

DRUGS (11)
  1. KEPPRA [Suspect]
     Dates: start: 2013, end: 2013
  2. KEPPRA [Suspect]
     Dosage: DAILY DOSE : 3000 MG
     Dates: start: 2013, end: 2013
  3. OXCARBAZEPINE [Concomitant]
     Dates: start: 20130624, end: 20130702
  4. OXCARBAZEPINE [Concomitant]
     Dosage: 600-300-600 MG, DAILY DOSE: 1.5 G/DAY
     Dates: start: 20130703
  5. CARBAMAZEPINE [Concomitant]
     Indication: GRAND MAL CONVULSION
     Dates: start: 2002, end: 2002
  6. CARBAMAZEPINE [Concomitant]
     Indication: GRAND MAL CONVULSION
     Dates: end: 201302
  7. FRISIUM [Concomitant]
     Dates: start: 2013, end: 2013
  8. FRISIUM [Concomitant]
     Dosage: DOSE TAPERED
     Dates: start: 2013, end: 20130615
  9. FRISIUM [Concomitant]
     Dosage: DAILY DOSE : 15 MG
     Dates: start: 2013, end: 2013
  10. FRISIUM [Concomitant]
     Dosage: DOSE REDUCED
     Dates: start: 2013
  11. TRIGOA [Concomitant]

REACTIONS (9)
  - Convulsion [Unknown]
  - Grand mal convulsion [Unknown]
  - Lymphoma [Unknown]
  - Haematoma [Unknown]
  - Pain in extremity [Unknown]
  - Pyrexia [Recovered/Resolved]
  - Headache [Unknown]
  - C-reactive protein increased [Unknown]
  - Inappropriate schedule of drug administration [Unknown]
